FAERS Safety Report 4749404-8 (Version None)
Quarter: 2005Q3

REPORT INFORMATION
  Report Type: 
  Country: None (occurrence: None)
  Receive Date: 20050819
  Receipt Date: 20050506
  Transmission Date: 20060218
  Serious: Yes (Death, Hospitalization, Other)
  Sender: FDA-Public Use
  Company Number: US-MERCK-0505USA00884

PATIENT
  Age: 73 Year
  Sex: Female
  Weight: 66 kg

DRUGS (7)
  1. VIOXX [Suspect]
     Indication: ARTHRITIS
     Route: 048
     Dates: start: 20000401
  2. VIOXX [Suspect]
     Route: 048
     Dates: start: 20000801, end: 20030421
  3. CELEBREX [Concomitant]
     Route: 065
     Dates: start: 20000817, end: 20000905
  4. ZOCOR [Concomitant]
     Route: 065
     Dates: start: 19990301, end: 20030401
  5. XANAX [Concomitant]
     Route: 065
     Dates: start: 19950501, end: 20010601
  6. ASPIRIN [Concomitant]
     Route: 065
     Dates: start: 20000601, end: 20010801
  7. PREMPRO [Concomitant]
     Route: 065
     Dates: start: 19970601, end: 20020701

REACTIONS (20)
  - ANAEMIA [None]
  - ARTHRALGIA [None]
  - CEREBROVASCULAR ACCIDENT [None]
  - DEATH [None]
  - ECCHYMOSIS [None]
  - ESSENTIAL TREMOR [None]
  - FALL [None]
  - FATIGUE [None]
  - FLATULENCE [None]
  - HAEMORRHAGE INTRACRANIAL [None]
  - HEADACHE [None]
  - HYPERLIPIDAEMIA [None]
  - INSOMNIA [None]
  - IRRITABLE BOWEL SYNDROME [None]
  - OSTEOARTHRITIS [None]
  - POSTMENOPAUSAL HAEMORRHAGE [None]
  - TEMPOROMANDIBULAR JOINT SYNDROME [None]
  - URINARY INCONTINENCE [None]
  - URINARY TRACT INFECTION [None]
  - WEIGHT INCREASED [None]
